FAERS Safety Report 7771460-3 (Version None)
Quarter: 2011Q3

REPORT INFORMATION
  Report Type: 
  Country: None (occurrence: None)
  Receive Date: 20110922
  Receipt Date: 20110418
  Transmission Date: 20111222
  Serious: No
  Sender: FDA-Public Use
  Company Number: US-ASTRAZENECA-2011SE22829

PATIENT
  Age: 57 Year
  Sex: Male

DRUGS (7)
  1. SEROQUEL [Suspect]
     Dosage: TAKES TWO TO THREE TABLETS DAILY
     Route: 048
  2. NEURONTIN [Concomitant]
  3. SEROQUEL [Suspect]
     Indication: SLEEP DISORDER
     Route: 048
  4. SEROQUEL [Suspect]
     Dosage: TAKES TWO TO THREE TABLETS DAILY
     Route: 048
  5. LEXAPRO [Concomitant]
  6. SEROQUEL [Suspect]
     Indication: ANXIETY
     Route: 048
  7. WELLBUTRIN [Concomitant]

REACTIONS (3)
  - OFF LABEL USE [None]
  - INTENTIONAL DRUG MISUSE [None]
  - DRUG INEFFECTIVE FOR UNAPPROVED INDICATION [None]
